FAERS Safety Report 23705545 (Version 1)
Quarter: 2024Q2

REPORT INFORMATION
  Report Type: Spontaneous
  Country: US (occurrence: US)
  Receive Date: 20240404
  Receipt Date: 20240404
  Transmission Date: 20240716
  Serious: Yes (Hospitalization, Other)
  Sender: FDA-Public Use
  Company Number: US-SUN PHARMACEUTICAL INDUSTRIES LTD-2024R1-439521

PATIENT
  Age: 13 Year
  Sex: Male

DRUGS (5)
  1. PREDNISONE [Suspect]
     Active Substance: PREDNISONE
     Indication: Cytomegalovirus colitis
     Dosage: 40 MILLIGRAM
     Route: 065
  2. PREDNISONE [Suspect]
     Active Substance: PREDNISONE
     Dosage: 20 UNK
     Route: 065
  3. UPADACITINIB [Suspect]
     Active Substance: UPADACITINIB
     Indication: Cytomegalovirus colitis
     Dosage: 45 MILLIGRAM
     Route: 065
  4. UPADACITINIB [Suspect]
     Active Substance: UPADACITINIB
     Dosage: 30 MILLIGRAM, DAILY
     Route: 065
  5. UPADACITINIB [Suspect]
     Active Substance: UPADACITINIB
     Dosage: 45 UNK
     Route: 065

REACTIONS (3)
  - Therapy non-responder [Unknown]
  - Anaemia of chronic disease [Unknown]
  - Condition aggravated [Unknown]
